FAERS Safety Report 25880374 (Version 1)
Quarter: 2025Q4

REPORT INFORMATION
  Report Type: Spontaneous
  Country: US (occurrence: US)
  Receive Date: 20251004
  Receipt Date: 20251004
  Transmission Date: 20260119
  Serious: Yes (Hospitalization, Other)
  Sender: AUROBINDO
  Company Number: US-MLMSERVICE-20250915-PI648252-00271-1

PATIENT
  Age: 67 Year
  Sex: Female

DRUGS (3)
  1. PREDNISONE [Suspect]
     Active Substance: PREDNISONE
     Indication: Evidence based treatment
     Dosage: 40 MILLIGRAM, ONCE A DAY
     Route: 048
  2. OBINUTUZUMAB [Suspect]
     Active Substance: OBINUTUZUMAB
     Indication: Chronic lymphocytic leukaemia
     Dosage: FOR 6 WEEKS (LAST DOSE APPROXIMATELY 1 YEAR PRIOR TO ADMISSION)
     Route: 065
  3. VENETOCLAX [Suspect]
     Active Substance: VENETOCLAX
     Indication: Chronic lymphocytic leukaemia
     Dosage: UNK
     Route: 065

REACTIONS (6)
  - Hepatitis [Recovered/Resolved]
  - Respiratory tract congestion [Recovered/Resolved]
  - Bile duct stenosis [Recovered/Resolved]
  - Rhinovirus infection [Recovered/Resolved]
  - Disseminated enteroviral infection [Recovered/Resolved]
  - Condition aggravated [Recovered/Resolved]
